FAERS Safety Report 4825270-7 (Version None)
Quarter: 2005Q4

REPORT INFORMATION
  Report Type: 
  Country: None (occurrence: None)
  Receive Date: 20051110
  Receipt Date: 20051110
  Transmission Date: 20060501
  Serious: No
  Sender: FDA-Public Use
  Company Number: None

PATIENT
  Age: 52 Year
  Sex: Male
  Weight: 90 kg

DRUGS (1)
  1. HALOPERIDOL [Suspect]
     Dosage: 40 MG   HS   PO
     Route: 048

REACTIONS (3)
  - BRADYKINESIA [None]
  - DRUG LEVEL INCREASED [None]
  - GAIT DISTURBANCE [None]
